FAERS Safety Report 21780304 (Version 1)
Quarter: 2022Q4

REPORT INFORMATION
  Report Type: Report from Study
  Country: US (occurrence: US)
  Receive Date: 20221227
  Receipt Date: 20221227
  Transmission Date: 20230113
  Serious: No
  Sender: FDA-Public Use
  Company Number: US-002147023-NVSC2022US298776

PATIENT
  Age: 38 Year
  Sex: Female

DRUGS (1)
  1. COSENTYX [Suspect]
     Active Substance: SECUKINUMAB
     Indication: Psoriasis
     Dosage: 300 MG, QW (FOR 5 WEEKS THEN Q FOUR WEEKS)
     Route: 058
     Dates: start: 20221128

REACTIONS (2)
  - Therapeutic product effect incomplete [Unknown]
  - Dandruff [Unknown]

NARRATIVE: CASE EVENT DATE: 20221223
